FAERS Safety Report 25541060 (Version 2)
Quarter: 2025Q4

REPORT INFORMATION
  Report Type: Report from Study
  Country: KR (occurrence: KR)
  Receive Date: 20250710
  Receipt Date: 20251201
  Transmission Date: 20260117
  Serious: Yes (Death)
  Sender: ABBVIE
  Company Number: KR-PFIZER INC-PV202500080174

PATIENT
  Age: 58 Year
  Sex: Male
  Weight: 61.1 kg

DRUGS (20)
  1. AVIBACTAM SODIUM\CEFTAZIDIME [Suspect]
     Active Substance: AVIBACTAM SODIUM\CEFTAZIDIME
     Indication: Pneumonia
     Dosage: 1.5 VIAL, TID, INJECTION
     Route: 042
     Dates: start: 20250619
  2. AVIBACTAM SODIUM\CEFTAZIDIME [Suspect]
     Active Substance: AVIBACTAM SODIUM\CEFTAZIDIME
     Indication: Pneumonia
     Dosage: 3 VIAL, TID, INJECTION
     Route: 042
     Dates: start: 20250613, end: 20250619
  3. Vecaron [Concomitant]
     Indication: Sedation
     Dosage: DOSE:10 MG
     Route: 042
     Dates: start: 20250616
  4. MIDAZOLAM [Concomitant]
     Active Substance: MIDAZOLAM
     Indication: Sedation
     Dosage: UNKNOWN
     Route: 042
     Dates: start: 20250613
  5. Vivaquine [Concomitant]
     Indication: Malaria prophylaxis
     Dosage: DOSE:25 MG
     Route: 048
     Dates: start: 20250609, end: 20250624
  6. METHYLPREDNISOLONE [Concomitant]
     Active Substance: METHYLPREDNISOLONE
     Indication: Infection
     Dosage: UNKNOWN
     Route: 042
     Dates: start: 20250516
  7. Fullgram [Concomitant]
     Indication: Infection
     Dosage: UNKNOWN
     Route: 042
     Dates: start: 20250609
  8. TRANEXAMIC ACID [Concomitant]
     Active Substance: TRANEXAMIC ACID
     Indication: Thrombocytopenia
     Dosage: UNKNOWN
     Route: 042
     Dates: start: 20250605
  9. MEROPENEM [Concomitant]
     Active Substance: MEROPENEM
     Indication: Infection
     Dosage: UNKNOWN
     Route: 042
     Dates: start: 20250611, end: 20250613
  10. Remiva [Concomitant]
     Indication: Sedation
     Dosage: UNKNOWN
     Route: 042
     Dates: start: 20250607
  11. VEMLIDY [Concomitant]
     Active Substance: TENOFOVIR ALAFENAMIDE FUMARATE
     Indication: Hepatitis B
     Dosage: UNKNOWN
     Route: 048
  12. FOLIC ACID [Concomitant]
     Active Substance: FOLIC ACID
     Indication: Anaemia prophylaxis
     Dosage: DOSE: 2 MG
     Route: 048
     Dates: start: 20250617
  13. Teiconin [Concomitant]
     Indication: Infection
     Dosage: UNKNOWN
     Route: 042
     Dates: start: 20250609
  14. NOXAFIL [Concomitant]
     Active Substance: POSACONAZOLE
     Indication: Infection
     Dosage: DOSE:300 MG
     Route: 048
     Dates: start: 20250611, end: 20250624
  15. NEXIUM [Concomitant]
     Active Substance: ESOMEPRAZOLE MAGNESIUM
     Indication: Gastritis prophylaxis
     Dosage: UNKNOWN
     Route: 042
     Dates: start: 20250605
  16. PRANDIN [Concomitant]
     Active Substance: REPAGLINIDE
     Indication: Prophylaxis against transplant rejection
     Dosage: DOSE:6 MG
     Route: 048
  17. Norpin [Concomitant]
     Indication: Prophylaxis
     Dosage: UNKNOWN
     Route: 042
     Dates: start: 20250613, end: 20250624
  18. Dulackhan [Concomitant]
     Indication: Prophylaxis
     Dosage: SYRUP: 30 ML
     Route: 048
     Dates: start: 20250610
  19. ACETYLCYSTEINE [Concomitant]
     Active Substance: ACETYLCYSTEINE
     Indication: Infection
     Dosage: UNKNOWN
     Route: 042
     Dates: start: 20250528
  20. LENOGRASTIM [Concomitant]
     Active Substance: LENOGRASTIM
     Indication: Neutropenia
     Dosage: UNKNOWN
     Route: 042
     Dates: start: 20250606, end: 20250621

REACTIONS (1)
  - Pneumonia [Fatal]

NARRATIVE: CASE EVENT DATE: 20250625
